FAERS Safety Report 7336493-X (Version None)
Quarter: 2011Q1

REPORT INFORMATION
  Report Type: 
  Country: None (occurrence: None)
  Receive Date: 20110307
  Receipt Date: 20110222
  Transmission Date: 20110831
  Serious: Yes (Hospitalization)
  Sender: FDA-Public Use
  Company Number: GB-MYLANLABS-2011S1003838

PATIENT
  Age: 36 Year
  Sex: Female

DRUGS (11)
  1. ETOPOSIDE [Suspect]
     Indication: OVARIAN GERM CELL CANCER
     Dosage: 100 MG/M2 FOR 2 DAYS
     Route: 065
  2. VINCRISTINE [Suspect]
     Indication: OVARIAN GERM CELL CANCER
     Route: 065
  3. CISPLATIN [Suspect]
     Route: 065
  4. CYCLOPHOSPHAMIDE [Suspect]
     Indication: OVARIAN GERM CELL CANCER
     Route: 065
  5. ONDANSETRON [Concomitant]
     Indication: ANTIEMETIC SUPPORTIVE CARE
     Route: 065
  6. ETOPOSIDE [Suspect]
     Route: 065
  7. CISPLATIN [Suspect]
     Indication: OVARIAN GERM CELL CANCER
     Dosage: 20 MG/M2 FOR 2 DAYS
     Route: 065
  8. METHOTREXATE [Suspect]
     Indication: OVARIAN GERM CELL CANCER
     Route: 065
  9. DEXAMETHASONE [Concomitant]
     Indication: ANTIEMETIC SUPPORTIVE CARE
     Route: 065
  10. DACTINOMYCIN [Suspect]
     Indication: OVARIAN GERM CELL CANCER
     Route: 065
  11. BLEOMYCIN SULFATE [Suspect]
     Indication: OVARIAN GERM CELL CANCER
     Route: 065

REACTIONS (2)
  - TUBERCULOSIS [None]
  - HORMONE LEVEL ABNORMAL [None]
